FAERS Safety Report 11442214 (Version 1)
Quarter: 2015Q3

REPORT INFORMATION
  Report Type: Spontaneous
  Country: US (occurrence: US)
  Receive Date: 20150901
  Receipt Date: 20150901
  Transmission Date: 20151125
  Serious: No
  Sender: FDA-Public Use
  Company Number: US-PFIZER INC-2015285896

PATIENT
  Age: 62 Year
  Sex: Female

DRUGS (8)
  1. DESMOPRESSIN [Suspect]
     Active Substance: DESMOPRESSIN
     Dosage: A TABLET IN THE MIDDLE OF THE DAY
  2. LEVOTHYROXINE SODIUM. [Suspect]
     Active Substance: LEVOTHYROXINE SODIUM
     Dosage: 150 ?G, DAILY
     Dates: start: 201505
  3. LEVOTHYROXINE SODIUM. [Suspect]
     Active Substance: LEVOTHYROXINE SODIUM
     Dosage: 137 ?G, DAILY
  4. CORTEF [Suspect]
     Active Substance: HYDROCORTISONE
     Dosage: UNK (10-5-5)
  5. DESMOPRESSIN [Suspect]
     Active Substance: DESMOPRESSIN
     Dosage: UNK, 3X/DAY
  6. DESMOPRESSIN [Suspect]
     Active Substance: DESMOPRESSIN
     Dosage: 2X/DAY
  7. DESMOPRESSIN [Suspect]
     Active Substance: DESMOPRESSIN
     Dosage: UNK, 1-1-2 SPRAYS AT BEDTIME
  8. DESMOPRESSIN [Suspect]
     Active Substance: DESMOPRESSIN
     Dosage: UNK (ONE SPRAY IN THE MORNING AND 1 AT NIGHT - ALTERNATING NOSTRILS)
     Dates: start: 201508

REACTIONS (4)
  - Depression [Unknown]
  - Fatigue [Unknown]
  - Visual impairment [Not Recovered/Not Resolved]
  - Weight increased [Unknown]
